FAERS Safety Report 13558988 (Version 2)
Quarter: 2017Q2

REPORT INFORMATION
  Report Type: Report from Study
  Country: NL (occurrence: NL)
  Receive Date: 20170518
  Receipt Date: 20170608
  Transmission Date: 20170830
  Serious: Yes (Hospitalization, Other)
  Sender: FDA-Public Use
  Company Number: NL-AMGEN-NLDSL2017072858

PATIENT
  Age: 62 Year
  Sex: Female

DRUGS (1)
  1. ARANESP [Suspect]
     Active Substance: DARBEPOETIN ALFA
     Indication: ANAEMIA OF MALIGNANT DISEASE
     Dosage: 300 MUG (500MCG/ML 0.6ML), QWK
     Route: 058

REACTIONS (2)
  - Anaemia [Unknown]
  - Waldenstrom^s macroglobulinaemia [Unknown]
